FAERS Safety Report 10565233 (Version 2)
Quarter: 2014Q4

REPORT INFORMATION
  Report Type: Spontaneous
  Country: ES (occurrence: ES)
  Receive Date: 20141105
  Receipt Date: 20141105
  Transmission Date: 20150529
  Serious: Yes (Other)
  Sender: FDA-Public Use
  Company Number: ES-AMGEN-ESPSP2014063517

PATIENT
  Age: 61 Year
  Sex: Female

DRUGS (8)
  1. EVASTEL [Concomitant]
     Indication: HYPERSENSITIVITY
     Dosage: UNK
  2. CALCIUM [Concomitant]
     Active Substance: CALCIUM
     Dosage: UNK
  3. VITAMIN D                          /00107901/ [Concomitant]
     Active Substance: ERGOCALCIFEROL
     Dosage: UNK
  4. PROLIA [Suspect]
     Active Substance: DENOSUMAB
     Indication: SPINAL FRACTURE
  5. PARACETAMOL [Concomitant]
     Active Substance: ACETAMINOPHEN
     Indication: MUSCLE CONTRACTURE
     Dosage: UNK
  6. PROLIA [Suspect]
     Active Substance: DENOSUMAB
     Indication: OSTEOPOROSIS POSTMENOPAUSAL
     Dosage: 60 MG, UNK
     Route: 065
     Dates: start: 20120422
  7. ORFIDAL [Concomitant]
     Active Substance: LORAZEPAM
     Indication: SLEEP DISORDER
     Dosage: 1/2 PILL
  8. VALIUM [Concomitant]
     Active Substance: DIAZEPAM
     Indication: MUSCLE CONTRACTURE
     Dosage: UNK

REACTIONS (28)
  - Pyrexia [Unknown]
  - Vomiting [Unknown]
  - Inappropriate schedule of drug administration [Unknown]
  - Transaminases increased [Recovering/Resolving]
  - Fall [Unknown]
  - Eye pain [Recovering/Resolving]
  - Spinal disorder [Unknown]
  - Immune system disorder [Unknown]
  - Arthropod bite [Unknown]
  - Skin discolouration [Recovering/Resolving]
  - Arthralgia [Unknown]
  - Hypersensitivity [Unknown]
  - Facial pain [Recovering/Resolving]
  - Lymphocyte count decreased [Unknown]
  - Paraesthesia [Unknown]
  - Folliculitis [Unknown]
  - Dyspepsia [Unknown]
  - Eye swelling [Recovering/Resolving]
  - Abdominal discomfort [Unknown]
  - Erythema [Unknown]
  - Cellulitis [Recovering/Resolving]
  - Irritable bowel syndrome [Unknown]
  - Joint warmth [Unknown]
  - Hordeolum [Recovering/Resolving]
  - Skin infection [Unknown]
  - Wrist fracture [Unknown]
  - Eyelid oedema [Recovering/Resolving]
  - Joint swelling [Recovering/Resolving]

NARRATIVE: CASE EVENT DATE: 2012
